FAERS Safety Report 8942242 (Version 1)
Quarter: 2012Q4

REPORT INFORMATION
  Report Type: Spontaneous
  Country: US (occurrence: None)
  Receive Date: 20121129
  Receipt Date: 20121129
  Transmission Date: 20130627
  Serious: Yes (Other)
  Sender: FDA-Public Use
  Company Number: None

PATIENT
  Age: 33 Year
  Sex: Male
  Weight: 86 kg

DRUGS (13)
  1. PROPOFOL [Suspect]
     Indication: SEDATION
     Dosage: start 10/8 and stop 10/24
titrated to effect  as directed  IV
     Route: 042
  2. ACETAMINOPHEN [Concomitant]
  3. ALBUTEROL [Concomitant]
  4. CLONIDINE [Concomitant]
  5. DIAZEPAM [Concomitant]
  6. DORIPENEM [Concomitant]
  7. GLYCOPYROLATE [Concomitant]
  8. HEPARIN [Concomitant]
  9. LORTAB [Concomitant]
  10. LINEZOLID [Concomitant]
  11. METOPROLOL [Concomitant]
  12. MIDAZOLAM [Concomitant]
  13. MORPHINE [Concomitant]

REACTIONS (2)
  - Blood creatine phosphokinase increased [None]
  - Propofol infusion syndrome [None]
